FAERS Safety Report 8449519-7 (Version None)
Quarter: 2012Q2

REPORT INFORMATION
  Report Type: 
  Country: None (occurrence: None)
  Receive Date: 20120619
  Receipt Date: 20120606
  Transmission Date: 20120825
  Serious: Yes (Death, Hospitalization)
  Sender: FDA-Public Use
  Company Number: US-MYLANLABS-2012S1011612

PATIENT
  Age: 69 Year
  Sex: Male

DRUGS (9)
  1. CLOPIDOGREL [Concomitant]
     Route: 065
  2. GLIPIZIDE [Concomitant]
     Route: 065
  3. METFORMIN HCL [Suspect]
     Route: 065
  4. GABAPENTIN [Concomitant]
     Route: 065
  5. ROSUVASTATIN [Concomitant]
     Route: 065
  6. LISINOPRIL [Concomitant]
     Route: 065
  7. OMEPRAZOLE [Concomitant]
     Route: 065
  8. METOPROLOL SUCCINATE [Concomitant]
     Route: 065
  9. SERTRALINE HYDROCHLORIDE [Concomitant]
     Route: 065

REACTIONS (2)
  - HYPERKALAEMIA [None]
  - LACTIC ACIDOSIS [None]
